FAERS Safety Report 18413653 (Version 7)
Quarter: 2022Q2

REPORT INFORMATION
  Report Type: Report from Study
  Country: DE (occurrence: DE)
  Receive Date: 20201021
  Receipt Date: 20220613
  Transmission Date: 20220721
  Serious: Yes (Hospitalization)
  Sender: FDA-Public Use
  Company Number: DE-AMGEN-DEUCT2020169624

PATIENT
  Age: 64 Year
  Sex: Male
  Weight: 98 kg

DRUGS (17)
  1. CARFILZOMIB [Suspect]
     Active Substance: CARFILZOMIB
     Indication: Plasma cell myeloma
     Dosage: 43.8 MILLIGRAM
     Route: 042
     Dates: start: 20201012
  2. DEXAMETHASONE [Suspect]
     Active Substance: DEXAMETHASONE
     Indication: Plasma cell myeloma
     Dosage: 20-40 MILLIGRAM
     Route: 065
     Dates: start: 20201012
  3. LENALIDOMIDE [Suspect]
     Active Substance: LENALIDOMIDE
     Indication: Plasma cell myeloma
     Dosage: 15-25 MILLIGRAM
     Route: 065
     Dates: start: 20201012
  4. APIXABAN [Concomitant]
     Active Substance: APIXABAN
     Dosage: 5 MILLIGRAM
     Route: 048
     Dates: start: 20170427
  5. THEOPHYLLINE ANHYDROUS [Concomitant]
     Active Substance: THEOPHYLLINE ANHYDROUS
     Dosage: 350 MILLIGRAM
     Route: 048
     Dates: start: 2009
  6. ETORICOXIB [Concomitant]
     Active Substance: ETORICOXIB
     Dosage: 90 MILLIGRAM
     Route: 048
     Dates: start: 20170609, end: 20201222
  7. PANTOPRAZOLE [Concomitant]
     Active Substance: PANTOPRAZOLE
     Dosage: 20-40 MILLIGRAM
     Route: 048
     Dates: start: 2001, end: 20211128
  8. RAMIPRIL [Concomitant]
     Active Substance: RAMIPRIL
     Dosage: 5 MILLIGRAM
     Route: 048
     Dates: start: 20100712, end: 20201221
  9. METAMIZOL [Concomitant]
     Active Substance: METAMIZOLE SODIUM
     Dosage: 500 UNK AND 1 GRAM
     Route: 048
     Dates: start: 20110304, end: 20201018
  10. SALMETEROL [Concomitant]
     Active Substance: SALMETEROL
     Dosage: 50 MICROGRAM
     Route: 061
     Dates: start: 20111118
  11. FLUTICASONE [Concomitant]
     Active Substance: FLUTICASONE
     Dosage: 500 MICROGRAM
     Route: 061
     Dates: start: 20111118
  12. ACLIDINIUM BROMIDE [Concomitant]
     Active Substance: ACLIDINIUM BROMIDE
     Dosage: 322 MICROGRAM
     Route: 061
     Dates: start: 20111126
  13. DUTASTERIDE [Concomitant]
     Active Substance: DUTASTERIDE
     Dosage: 0.5 MILLIGRAM
     Route: 048
     Dates: start: 20160120
  14. TAMSULOSIN [Concomitant]
     Active Substance: TAMSULOSIN
     Dosage: 0.4 MILLIGRAM
     Route: 048
     Dates: start: 20160120
  15. ACYCLOVIR [Concomitant]
     Active Substance: ACYCLOVIR
     Dosage: 200 MILLIGRAM
     Dates: start: 20201012, end: 20211129
  16. ACYCLOVIR [Concomitant]
     Active Substance: ACYCLOVIR
     Dates: start: 20201012, end: 20211129
  17. BACLOFEN [Concomitant]
     Active Substance: BACLOFEN
     Dosage: 25 MILLIGRAM
     Route: 048
     Dates: start: 20201013, end: 20201021

REACTIONS (1)
  - Infection [Recovered/Resolved]

NARRATIVE: CASE EVENT DATE: 20201017
